FAERS Safety Report 8557508-7 (Version None)
Quarter: 2012Q2

REPORT INFORMATION
  Report Type: 
  Country: None (occurrence: None)
  Receive Date: 20120418
  Receipt Date: 20100505
  Transmission Date: 20120825
  Serious: Yes (Other)
  Sender: FDA-Public Use
  Company Number: PHHY2010US18074

PATIENT
  Sex: Female

DRUGS (3)
  1. DEXLANSOPRAZOLE [Concomitant]
  2. LEVOXYL [Concomitant]
  3. DIOVAN HCT [Suspect]
     Dosage: 160/12.5 MG

REACTIONS (1)
  - BLOOD PRESSURE DECREASED [None]
